FAERS Safety Report 5818527-4 (Version None)
Quarter: 2008Q3

REPORT INFORMATION
  Report Type: 
  Country: None (occurrence: None)
  Receive Date: 20080717
  Receipt Date: 20080711
  Transmission Date: 20090109
  Serious: Yes (Hospitalization, Other)
  Sender: FDA-Public Use
  Company Number: 2008S1000183

PATIENT
  Age: 65 Year
  Sex: Female
  Weight: 74.8435 kg

DRUGS (30)
  1. SORIATANE [Suspect]
     Indication: SQUAMOUS CELL CARCINOMA
     Dosage: 25 MG, PO, 25 MG;TIW;PO
     Route: 048
     Dates: start: 20080401, end: 20080501
  2. SORIATANE [Suspect]
     Indication: SQUAMOUS CELL CARCINOMA
     Dosage: 25 MG, PO, 25 MG;TIW;PO
     Route: 048
     Dates: start: 20080501, end: 20080501
  3. NEORAL [Suspect]
     Indication: IMMUNOSUPPRESSION
     Dosage: PO, PO
     Route: 048
     Dates: end: 20080501
  4. NEORAL [Suspect]
     Indication: IMMUNOSUPPRESSION
     Dosage: PO, PO
     Route: 048
     Dates: start: 20080501, end: 20080530
  5. ALCOHOL [Suspect]
     Dosage: 3 L;
     Dates: start: 20080401, end: 20080530
  6. NEURONTIN [Suspect]
     Indication: NEUROPATHY PERIPHERAL
     Dates: start: 20080525, end: 20080501
  7. NEURONTIN [Suspect]
     Indication: NEUROPATHY PERIPHERAL
     Dates: end: 20080525
  8. NEURONTIN [Suspect]
     Indication: NEUROPATHY PERIPHERAL
     Dates: start: 20080602
  9. VICODIN [Suspect]
     Indication: TOOTH FRACTURE
     Dates: start: 20080527, end: 20080527
  10. NITROUS OXIDE [Suspect]
     Indication: TOOTH FRACTURE
     Dosage: X1;
     Dates: start: 20080527, end: 20080527
  11. DURAGESIC-100 [Suspect]
     Indication: NEUROPATHY PERIPHERAL
     Dosage: X1; TOP
     Route: 061
     Dates: start: 20080526, end: 20080528
  12. LIPITOR [Suspect]
     Indication: DRUG USE FOR UNKNOWN INDICATION
     Dosage: 10 MG; QD;
     Dates: end: 20080501
  13. TRICOR [Suspect]
     Indication: DRUG USE FOR UNKNOWN INDICATION
     Dosage: 48 MG; QD;
     Dates: end: 20080501
  14. ZETIA [Suspect]
     Indication: DRUG USE FOR UNKNOWN INDICATION
     Dosage: 10 MG; QD;
     Dates: end: 20080501
  15. BACTRIM [Suspect]
     Indication: DRUG USE FOR UNKNOWN INDICATION
  16. RAPAMUNE [Concomitant]
  17. ARIMIDEX [Concomitant]
  18. EFFEXOR [Concomitant]
  19. SYNTHROID [Concomitant]
  20. COREG [Concomitant]
  21. CRESTOR [Concomitant]
  22. CLONIDINE [Concomitant]
  23. CLONAZEPAM [Concomitant]
  24. AMBIEN [Concomitant]
  25. LIPITOR [Concomitant]
  26. TRICOR [Concomitant]
  27. ZETIA [Concomitant]
  28. ALLOPURINOL [Concomitant]
  29. NEXIUM [Concomitant]
  30. ARANESP [Concomitant]

REACTIONS (23)
  - ALCOHOL USE [None]
  - AMNESIA [None]
  - ASCITES [None]
  - BREAST CANCER METASTATIC [None]
  - CONDITION AGGRAVATED [None]
  - CONFUSIONAL STATE [None]
  - CONSTIPATION [None]
  - DECREASED APPETITE [None]
  - DEPRESSION [None]
  - DIARRHOEA [None]
  - DRUG INEFFECTIVE [None]
  - DRUG INTERACTION [None]
  - DRY MOUTH [None]
  - FAECAL INCONTINENCE [None]
  - HEPATIC FAILURE [None]
  - HIATUS HERNIA [None]
  - IMPAIRED GASTRIC EMPTYING [None]
  - MENTAL STATUS CHANGES [None]
  - OEDEMA PERIPHERAL [None]
  - OFF LABEL USE [None]
  - RENAL FAILURE ACUTE [None]
  - TOOTH REPAIR [None]
  - WEIGHT INCREASED [None]
